FAERS Safety Report 16133506 (Version 3)
Quarter: 2019Q2

REPORT INFORMATION
  Report Type: Spontaneous
  Country: US (occurrence: US)
  Receive Date: 20190329
  Receipt Date: 20190618
  Transmission Date: 20190711
  Serious: No
  Sender: FDA-Public Use
  Company Number: US-BIOGEN-2019BI00690178

PATIENT
  Age: 44 Year
  Sex: Female
  Weight: 120.31 kg

DRUGS (1)
  1. TYSABRI [Suspect]
     Active Substance: NATALIZUMAB
     Indication: MULTIPLE SCLEROSIS
     Route: 050
     Dates: start: 20120209

REACTIONS (8)
  - Vision blurred [Unknown]
  - Rash [Not Recovered/Not Resolved]
  - Nausea [Unknown]
  - Malaise [Not Recovered/Not Resolved]
  - Product dose omission [Unknown]
  - Impetigo [Not Recovered/Not Resolved]
  - Rash pustular [Unknown]
  - Headache [Unknown]

NARRATIVE: CASE EVENT DATE: 20190227
